FAERS Safety Report 17901617 (Version 2)
Quarter: 2020Q2

REPORT INFORMATION
  Report Type: Spontaneous
  Country: US (occurrence: US)
  Receive Date: 20200616
  Receipt Date: 20200623
  Transmission Date: 20200714
  Serious: No
  Sender: FDA-Public Use
  Company Number: US-VERTEX PHARMACEUTICALS-2020-012757

PATIENT
  Sex: Male

DRUGS (16)
  1. FLONASE [Concomitant]
     Active Substance: FLUTICASONE PROPIONATE
  2. MELATONIN [Concomitant]
     Active Substance: MELATONIN
  3. VITAMIN D [COLECALCIFEROL] [Concomitant]
     Active Substance: CHOLECALCIFEROL
  4. TRIKAFTA [Suspect]
     Active Substance: ELEXACAFTOR\IVACAFTOR\TEZACAFTOR
     Indication: CYSTIC FIBROSIS
     Dosage: 2 ORANGE TAB (100 MG ELEXA/ 50 MG TEZA/ 75 MG IVA) AM; 1 BLUE TAB (150MG IVA) PM
     Route: 048
     Dates: start: 20200611
  5. SYMBICORT [Concomitant]
     Active Substance: BUDESONIDE\FORMOTEROL FUMARATE DIHYDRATE
  6. ZOFRAN [Concomitant]
     Active Substance: ONDANSETRON HYDROCHLORIDE
  7. PROTONIX [OMEPRAZOLE] [Concomitant]
     Active Substance: OMEPRAZOLE
  8. FIBER LAXATIVE [Concomitant]
     Active Substance: CALCIUM POLYCARBOPHIL
  9. ZENPEP [Concomitant]
     Active Substance: PANCRELIPASE AMYLASE\PANCRELIPASE LIPASE\PANCRELIPASE PROTEASE
  10. VANCONIN [Concomitant]
  11. SINGULAIR [Concomitant]
     Active Substance: MONTELUKAST SODIUM
  12. MIRALAX [Concomitant]
     Active Substance: POLYETHYLENE GLYCOL 3350
  13. PREVACID [Concomitant]
     Active Substance: LANSOPRAZOLE
  14. CULTURELLE [Concomitant]
     Active Substance: LACTOBACILLUS RHAMNOSUS
  15. VENTOLIN [Concomitant]
     Active Substance: ALBUTEROL SULFATE
  16. PULMOZYME [Concomitant]
     Active Substance: DORNASE ALFA

REACTIONS (1)
  - Off label use [Unknown]
